FAERS Safety Report 16275731 (Version 4)
Quarter: 2019Q2

REPORT INFORMATION
  Report Type: Report from Study
  Country: BD (occurrence: BD)
  Receive Date: 20190504
  Receipt Date: 20190628
  Transmission Date: 20190711
  Serious: Yes (Death, Other)
  Sender: FDA-Public Use
  Company Number: PHHY2019BD101848

PATIENT
  Age: 37 Year
  Sex: Male
  Weight: 62 kg

DRUGS (1)
  1. CERTICAN [Suspect]
     Active Substance: EVEROLIMUS
     Indication: PROPHYLAXIS AGAINST TRANSPLANT REJECTION
     Dosage: 0.5 MG, QD
     Route: 048
     Dates: start: 201901

REACTIONS (4)
  - Haemoglobin decreased [Unknown]
  - Pneumonia [Unknown]
  - Infection [Unknown]
  - Respiratory failure [Fatal]

NARRATIVE: CASE EVENT DATE: 201902
